FAERS Safety Report 10367643 (Version 1)
Quarter: 2014Q3

REPORT INFORMATION
  Report Type: Spontaneous
  Country: US (occurrence: None)
  Receive Date: 20140806
  Receipt Date: 20140806
  Transmission Date: 20150326
  Serious: Yes (Life-Threatening, Hospitalization)
  Sender: FDA-Public Use
  Company Number: None

PATIENT
  Age: 51 Year
  Sex: Male
  Weight: 145.15 kg

DRUGS (1)
  1. DIVALPROEX SODIUM 500 MG LUPIN PHARMA CENT [Suspect]
     Active Substance: DIVALPROEX SODIUM
     Indication: CONVULSION
     Route: 048
     Dates: start: 20140802, end: 20140803

REACTIONS (6)
  - Product packaging issue [None]
  - Urticaria [None]
  - Pruritus [None]
  - Product blister packaging issue [None]
  - Anaphylactic reaction [None]
  - Product quality issue [None]

NARRATIVE: CASE EVENT DATE: 20140802
